FAERS Safety Report 5581020-0 (Version None)
Quarter: 2008Q1

REPORT INFORMATION
  Report Type: 
  Country: None (occurrence: None)
  Receive Date: 20080103
  Receipt Date: 20071220
  Transmission Date: 20080703
  Serious: Yes (Hospitalization)
  Sender: FDA-Public Use
  Company Number: DE-MERCK-0708DEU00543

PATIENT
  Age: 48 Year
  Sex: Female

DRUGS (9)
  1. FOSAMAX [Suspect]
     Indication: OSTEOPOROSIS
     Route: 048
     Dates: start: 20020101, end: 20060501
  2. ASPIRIN [Concomitant]
     Route: 048
     Dates: start: 19991111
  3. SIMVASTATIN [Concomitant]
     Route: 048
     Dates: start: 20010101
  4. OMEPRAZOLE [Concomitant]
     Indication: GASTROOESOPHAGEAL REFLUX DISEASE
     Route: 048
     Dates: start: 19991001
  5. ACETAMINOPHEN [Concomitant]
     Route: 065
  6. RAMIPRIL [Concomitant]
     Route: 065
  7. CHOLECALCIFEROL [Concomitant]
     Indication: OSTEOPOROSIS
     Route: 065
     Dates: start: 20020701
  8. CALCIUM (UNSPECIFIED) [Concomitant]
     Indication: OSTEOPOROSIS
     Route: 065
     Dates: start: 20020701
  9. ATORVASTATIN CALCIUM [Concomitant]
     Indication: HYPERCHOLESTEROLAEMIA
     Route: 048
     Dates: start: 20010810

REACTIONS (8)
  - ABSCESS [None]
  - ABSCESS JAW [None]
  - FISTULA [None]
  - OSTEOMYELITIS [None]
  - OSTEONECROSIS [None]
  - PAROTITIS [None]
  - PHARYNGEAL ABSCESS [None]
  - TOOTH DISORDER [None]
